FAERS Safety Report 4914646-5 (Version None)
Quarter: 2006Q1

REPORT INFORMATION
  Report Type: 
  Country: None (occurrence: None)
  Receive Date: 20060216
  Receipt Date: 20030605
  Transmission Date: 20060701
  Serious: Yes (Death, Other)
  Sender: FDA-Public Use
  Company Number: US-MERCK-0306USA00944

PATIENT
  Age: 45 Year
  Sex: Female
  Weight: 82 kg

DRUGS (12)
  1. VIOXX [Suspect]
     Indication: ARTHRALGIA
     Route: 048
  2. VIOXX [Suspect]
     Route: 048
     Dates: start: 20000623, end: 20010110
  3. PREMARIN [Concomitant]
     Indication: HOT FLUSH
     Route: 048
     Dates: start: 19950101, end: 20000601
  4. PREMARIN [Concomitant]
     Route: 048
     Dates: start: 20000601, end: 20000701
  5. PREMARIN [Concomitant]
     Route: 048
     Dates: start: 20000701
  6. LOPID [Concomitant]
     Route: 065
     Dates: start: 20000401
  7. IBUPROFEN [Concomitant]
     Route: 065
  8. PREVACID [Concomitant]
     Route: 048
     Dates: end: 20000901
  9. PREVACID [Concomitant]
     Route: 048
     Dates: start: 20000901, end: 20001127
  10. PREVACID [Concomitant]
     Route: 065
     Dates: start: 20001128, end: 20000101
  11. PREVACID [Concomitant]
     Route: 065
     Dates: start: 20010101
  12. ZANTAC [Concomitant]
     Route: 065
     Dates: start: 20000601

REACTIONS (11)
  - ANAEMIA [None]
  - BARRETT'S OESOPHAGUS [None]
  - BRONCHITIS [None]
  - DEATH [None]
  - DUODENITIS [None]
  - GASTRITIS EROSIVE [None]
  - GRAND MAL CONVULSION [None]
  - HAEMORRHOIDS [None]
  - INTERTRIGO CANDIDA [None]
  - RHINITIS ALLERGIC [None]
  - UPPER RESPIRATORY TRACT INFECTION [None]
